FAERS Safety Report 18391740 (Version 1)
Quarter: 2020Q4

REPORT INFORMATION
  Report Type: Spontaneous
  Country: US (occurrence: US)
  Receive Date: 20201016
  Receipt Date: 20201016
  Transmission Date: 20210114
  Serious: No
  Sender: FDA-Public Use
  Company Number: US-MYLANLABS-2020M1082289

PATIENT
  Sex: Female

DRUGS (1)
  1. ESTRADIOL TRANSDERMAL SYSTEM [Suspect]
     Active Substance: ESTRADIOL
     Indication: HYSTERECTOMY
     Dosage: 0.1 MILLIGRAM
     Route: 062

REACTIONS (7)
  - Hot flush [Recovered/Resolved]
  - Vulvovaginal pruritus [Recovered/Resolved]
  - Feeling abnormal [Not Recovered/Not Resolved]
  - Premenstrual syndrome [Recovered/Resolved]
  - Drug ineffective [Unknown]
  - Product substitution issue [Unknown]
  - Vulvovaginal dryness [Not Recovered/Not Resolved]
